FAERS Safety Report 4922104-7 (Version None)
Quarter: 2006Q1

REPORT INFORMATION
  Report Type: 
  Country: None (occurrence: None)
  Receive Date: 20060224
  Receipt Date: 20060215
  Transmission Date: 20060701
  Serious: Yes (Hospitalization)
  Sender: FDA-Public Use
  Company Number: FR-JNJFOC-20050605194

PATIENT
  Age: 65 Year
  Sex: Male

DRUGS (5)
  1. REMICADE [Suspect]
     Indication: POLYARTHRITIS
     Dosage: 4 INFUSIONS
     Route: 042
  2. GLUCOPHAGE [Concomitant]
     Route: 048
  3. LIPANTHYL [Concomitant]
     Route: 048
  4. TENORMIN [Concomitant]
     Route: 048
  5. ZOCOR [Concomitant]
     Route: 048

REACTIONS (4)
  - CERVICAL GLAND TUBERCULOSIS [None]
  - CHOLESTASIS [None]
  - PULMONARY TUBERCULOSIS [None]
  - SPLEEN TUBERCULOSIS [None]
